FAERS Safety Report 7651102-8 (Version None)
Quarter: 2011Q3

REPORT INFORMATION
  Report Type: 
  Country: None (occurrence: None)
  Receive Date: 20110802
  Receipt Date: 20110719
  Transmission Date: 20111222
  Serious: No
  Sender: FDA-Public Use
  Company Number: US-B.I. PHARMACEUTICALS,INC./RIDGEFIELD-2011-BP-18128BP

PATIENT
  Sex: Female

DRUGS (4)
  1. ZANTAC [Suspect]
     Indication: HYPERSENSITIVITY
     Dosage: 300 MG
     Route: 048
     Dates: start: 20110712
  2. ALTACE [Concomitant]
     Indication: ARRHYTHMIA
     Dosage: 10 MG
     Route: 048
  3. ALLEGRA [Concomitant]
     Indication: HYPERSENSITIVITY
     Dosage: 180 MG
     Route: 048
     Dates: start: 20110701
  4. FLUOROMETHOLONE [Suspect]
     Indication: HYPERSENSITIVITY
     Route: 061
     Dates: start: 20110701, end: 20110716

REACTIONS (2)
  - NAUSEA [None]
  - DECREASED APPETITE [None]
